FAERS Safety Report 5558094-6 (Version None)
Quarter: 2007Q4

REPORT INFORMATION
  Report Type: 
  Country: None (occurrence: None)
  Receive Date: 20071214
  Receipt Date: 20071205
  Transmission Date: 20080405
  Serious: Yes (Life-Threatening, Other)
  Sender: FDA-Public Use
  Company Number: FR-ABBOTT-07P-056-0425194-00

PATIENT
  Sex: Male

DRUGS (4)
  1. HUMIRA [Suspect]
     Indication: RHEUMATOID ARTHRITIS
     Route: 058
     Dates: end: 20070820
  2. METHOTREXATE [Suspect]
     Indication: RHEUMATOID ARTHRITIS
     Route: 048
     Dates: end: 20070820
  3. PREDNISONE [Suspect]
     Indication: RHEUMATOID ARTHRITIS
     Route: 048
     Dates: start: 19901101, end: 20070820
  4. PREDNISONE [Suspect]

REACTIONS (11)
  - BALANCE DISORDER [None]
  - CEREBELLAR SYNDROME [None]
  - CLONUS [None]
  - CONFUSIONAL STATE [None]
  - DIPLOPIA [None]
  - EPILEPSY [None]
  - HEADACHE [None]
  - LOSS OF CONSCIOUSNESS [None]
  - NOCARDIOSIS [None]
  - PHOTOPHOBIA [None]
  - SPEECH DISORDER [None]
